FAERS Safety Report 4330511-9 (Version None)
Quarter: 2004Q1

REPORT INFORMATION
  Report Type: 
  Country: None (occurrence: None)
  Receive Date: 20040329
  Receipt Date: 20040319
  Transmission Date: 20041129
  Serious: Yes (Hospitalization)
  Sender: FDA-Public Use
  Company Number: 2004205105JP

PATIENT
  Sex: 0

DRUGS (6)
  1. ALPRAZOLAM [Suspect]
     Dosage: 16 MG/DAY, ORAL
     Route: 048
  2. LEXOTAN [Concomitant]
  3. DEPAS (ETIZOLAM) [Concomitant]
  4. EVAMYL (LORMETAZEPAM) [Concomitant]
  5. RISPERDAL [Concomitant]
  6. DORAL [Concomitant]

REACTIONS (5)
  - ASTHENIA [None]
  - MULTIPLE DRUG OVERDOSE [None]
  - RENAL IMPAIRMENT [None]
  - SOMNOLENCE [None]
  - SUICIDE ATTEMPT [None]
